FAERS Safety Report 12701802 (Version 1)
Quarter: 2016Q3

REPORT INFORMATION
  Report Type: Spontaneous
  Country: US (occurrence: US)
  Receive Date: 20160831
  Receipt Date: 20160831
  Transmission Date: 20161109
  Serious: No
  Sender: FDA-Public Use
  Company Number: US-JAZZ-2016-US-007441

PATIENT
  Sex: Female
  Weight: 45.8 kg

DRUGS (21)
  1. DARVOCET-N 100 [Concomitant]
     Active Substance: ACETAMINOPHEN\PROPOXYPHENE NAPSYLATE
  2. FISH OIL [Concomitant]
     Active Substance: FISH OIL
  3. REGLAN [Concomitant]
     Active Substance: METOCLOPRAMIDE HYDROCHLORIDE
  4. XYREM [Suspect]
     Active Substance: SODIUM OXYBATE
     Indication: FIBROMYALGIA
     Dosage: 2.25 G, BID
     Route: 048
     Dates: start: 200306, end: 200308
  5. METHOCARBAMOL. [Concomitant]
     Active Substance: METHOCARBAMOL
  6. NEXIUM [Concomitant]
     Active Substance: ESOMEPRAZOLE MAGNESIUM
  7. ZIANA [Concomitant]
     Active Substance: CLINDAMYCIN PHOSPHATE\TRETINOIN
  8. ZOLOFT [Concomitant]
     Active Substance: SERTRALINE HYDROCHLORIDE
  9. XYREM [Suspect]
     Active Substance: SODIUM OXYBATE
     Dosage: 3 G, BID
     Route: 048
     Dates: start: 200308
  10. LYRICA [Concomitant]
     Active Substance: PREGABALIN
  11. NEURONTIN [Concomitant]
     Active Substance: GABAPENTIN
  12. TRAMADOL HCL [Concomitant]
     Active Substance: TRAMADOL HYDROCHLORIDE
  13. CITRACAL [Concomitant]
     Active Substance: CALCIUM CITRATE
  14. VAGIFEM [Concomitant]
     Active Substance: ESTRADIOL
  15. SUCRALFATE. [Concomitant]
     Active Substance: SUCRALFATE
  16. FLAXSEED [Concomitant]
     Active Substance: FLAX SEED
  17. GUAIFENESIN. [Concomitant]
     Active Substance: GUAIFENESIN
  18. TRAZODONE [Concomitant]
     Active Substance: TRAZODONE HYDROCHLORIDE
  19. NALTREXONE [Concomitant]
     Active Substance: NALTREXONE
  20. GLUCOSAMINE CHONDROITIN [Concomitant]
     Active Substance: CHONDROITIN SULFATE (BOVINE)\GLUCOSAMINE HYDROCHLORIDE
  21. VITAMIN D3 [Concomitant]
     Active Substance: CHOLECALCIFEROL

REACTIONS (1)
  - Gastrooesophageal reflux disease [Unknown]
